FAERS Safety Report 5017893-X (Version None)
Quarter: 2006Q2

REPORT INFORMATION
  Report Type: 
  Country: None (occurrence: None)
  Receive Date: 20060602
  Receipt Date: 20060602
  Transmission Date: 20061013
  Serious: Yes (Other)
  Sender: FDA-Public Use
  Company Number: None

PATIENT
  Age: 53 Year
  Sex: Female
  Weight: 82.5547 kg

DRUGS (10)
  1. HERCEPTIN [Suspect]
     Indication: BREAST CANCER
     Dosage: 530 MG ONE TIME DOSE IV DRIP
     Route: 041
     Dates: start: 20060601, end: 20060601
  2. GLYBURIDE [Concomitant]
  3. GLUCOPHAGE [Concomitant]
  4. NEXIUM [Concomitant]
  5. ZESTRIL [Concomitant]
  6. ZIAC [Concomitant]
  7. ZOLOFT [Concomitant]
  8. XANAX [Concomitant]
  9. IMODIUM [Concomitant]
  10. WELCHOL [Concomitant]

REACTIONS (3)
  - BRADYCARDIA [None]
  - HYPOTENSION [None]
  - INFUSION RELATED REACTION [None]
